FAERS Safety Report 26025624 (Version 1)
Quarter: 2025Q4

REPORT INFORMATION
  Report Type: Spontaneous
  Country: GB (occurrence: GB)
  Receive Date: 20251111
  Receipt Date: 20251111
  Transmission Date: 20260117
  Serious: Yes (Disabling)
  Sender: RANBAXY
  Company Number: None

PATIENT
  Age: 79 Year
  Sex: Female
  Weight: 87 kg

DRUGS (1)
  1. PREGABALIN [Suspect]
     Active Substance: PREGABALIN
     Indication: Adverse drug reaction
     Dosage: 50MG ONCE A DAY
     Route: 065
     Dates: start: 20251017, end: 20251019

REACTIONS (1)
  - Dizziness [Recovered/Resolved]

NARRATIVE: CASE EVENT DATE: 20251017
